FAERS Safety Report 25971085 (Version 1)
Quarter: 2025Q4

REPORT INFORMATION
  Report Type: Report from Study
  Country: US (occurrence: US)
  Receive Date: 20251028
  Receipt Date: 20251028
  Transmission Date: 20260118
  Serious: Yes (Hospitalization)
  Sender: GILEAD
  Company Number: US-GILEAD-2025-0733930

PATIENT
  Age: 33 Year
  Sex: Male

DRUGS (1)
  1. AZTREONAM LYSINE [Suspect]
     Active Substance: AZTREONAM LYSINE
     Indication: Bronchiectasis
     Dosage: INHALE 75MG 3 TIMES DAILY
     Route: 055
     Dates: start: 202406

REACTIONS (3)
  - Lung disorder [Unknown]
  - Haemoptysis [Unknown]
  - Product use in unapproved indication [Not Recovered/Not Resolved]
